FAERS Safety Report 6321178-9 (Version None)
Quarter: 2009Q3

REPORT INFORMATION
  Report Type: 
  Country: None (occurrence: None)
  Receive Date: 20090822
  Receipt Date: 20090528
  Transmission Date: 20100115
  Serious: No
  Sender: FDA-Public Use
  Company Number: US-ABBOTT-08P-163-0494768-00

PATIENT
  Sex: Male
  Weight: 93.524 kg

DRUGS (8)
  1. NIASPAN [Suspect]
     Indication: HYPERCHOLESTEROLAEMIA
     Route: 048
     Dates: start: 20081212, end: 20090501
  2. NIASPAN [Suspect]
     Route: 048
     Dates: start: 20090501, end: 20090501
  3. NIASPAN [Suspect]
     Route: 048
     Dates: start: 20090501, end: 20090501
  4. NIASPAN [Suspect]
     Dates: start: 20090527
  5. SIMVASTATIN [Concomitant]
     Indication: HYPERCHOLESTEROLAEMIA
  6. METFORMIN [Concomitant]
     Indication: DIABETES MELLITUS
  7. AUGMENTIN [Concomitant]
     Indication: DRUG USE FOR UNKNOWN INDICATION
     Dates: start: 20090324
  8. LISINOPRIL [Concomitant]
     Indication: HYPERTENSION

REACTIONS (8)
  - ASTHENIA [None]
  - BURNING SENSATION [None]
  - DECREASED APPETITE [None]
  - DIZZINESS [None]
  - ERYTHEMA [None]
  - FLUSHING [None]
  - GENERALISED ERYTHEMA [None]
  - SKIN BURNING SENSATION [None]
